FAERS Safety Report 7468809 (Version 3)
Quarter: 2013Q4

REPORT INFORMATION
  Report Type: Spontaneous
  Country: US (occurrence: US)
  Receive Date: 20100713
  Receipt Date: 20131022
  Transmission Date: 20140711
  Serious: Yes (Hospitalization)
  Sender: FDA-Public Use
  Company Number: US-BIOGENIDEC-2010BI023036

PATIENT
  Age: 46 Year
  Sex: Female

DRUGS (1)
  1. AVONEX [Suspect]
     Indication: MULTIPLE SCLEROSIS
     Route: 030
     Dates: start: 20080229

REACTIONS (1)
  - Multiple sclerosis relapse [Not Recovered/Not Resolved]
